FAERS Safety Report 17801815 (Version 1)
Quarter: 2020Q2

REPORT INFORMATION
  Report Type: Spontaneous
  Country: US (occurrence: US)
  Receive Date: 20200518
  Receipt Date: 20200518
  Transmission Date: 20200714
  Serious: Yes (Other)
  Sender: FDA-Public Use
  Company Number: None

PATIENT
  Age: 67 Year
  Sex: Female
  Weight: 72.6 kg

DRUGS (18)
  1. METHYLPREDNISOLONE. [Concomitant]
     Active Substance: METHYLPREDNISOLONE
     Dates: start: 20200513
  2. ZINC. [Concomitant]
     Active Substance: ZINC
     Dates: start: 20200513
  3. VITAMIN D [Concomitant]
     Active Substance: VITAMIN D NOS
     Dates: start: 20200513
  4. ASPIRIN. [Concomitant]
     Active Substance: ASPIRIN
     Dates: start: 20200513
  5. DIPRIDAMOLE [Concomitant]
     Active Substance: DIPYRIDAMOLE
     Dates: start: 20200515
  6. NYSTATIN ORAL SUSP [Concomitant]
     Dates: start: 20200513
  7. PANTOPRAZOLE [Concomitant]
     Active Substance: PANTOPRAZOLE
     Dates: start: 20200513
  8. LETROZOLE. [Concomitant]
     Active Substance: LETROZOLE
     Dates: start: 20200513
  9. LISINOPRIL. [Concomitant]
     Active Substance: LISINOPRIL
     Dates: start: 20200101
  10. PERCOCET [Concomitant]
     Active Substance: ACETAMINOPHEN\OXYCODONE HYDROCHLORIDE
     Dates: start: 20200514
  11. VITAMIN C [Concomitant]
     Active Substance: ASCORBIC ACID
     Dates: start: 20200513
  12. EMPAGLIFLOZIN [Concomitant]
     Active Substance: EMPAGLIFLOZIN
     Dates: start: 20200101
  13. METFORMIN [Concomitant]
     Active Substance: METFORMIN HYDROCHLORIDE
     Dates: start: 20200101
  14. INSULIN LISPRO [Concomitant]
     Active Substance: INSULIN LISPRO
     Dates: start: 20200513
  15. REMDESIVIR. [Suspect]
     Active Substance: REMDESIVIR
     Indication: COVID-19
     Dates: start: 20200515, end: 20200515
  16. AMLODIPINE [Concomitant]
     Active Substance: AMLODIPINE BESYLATE
     Dates: start: 20200101
  17. ALBUTEROL HFA [Concomitant]
     Active Substance: ALBUTEROL SULFATE
     Dates: start: 20200514
  18. SITAGLIPTIN [Concomitant]
     Active Substance: SITAGLIPTIN
     Dates: start: 20200101

REACTIONS (3)
  - Swelling [None]
  - Dysphagia [None]
  - Throat irritation [None]

NARRATIVE: CASE EVENT DATE: 20200515
